FAERS Safety Report 14917347 (Version 1)
Quarter: 2018Q2

REPORT INFORMATION
  Report Type: Spontaneous
  Country: US (occurrence: US)
  Receive Date: 20180521
  Receipt Date: 20180521
  Transmission Date: 20180711
  Serious: No
  Sender: FDA-Public Use
  Company Number: US-ELI_LILLY_AND_COMPANY-US201805007148

PATIENT
  Sex: Female

DRUGS (2)
  1. HUMULIN R U-500 [Suspect]
     Active Substance: INSULIN HUMAN
     Dosage: 20 U, TID
     Route: 065
  2. HUMULIN R U-500 [Suspect]
     Active Substance: INSULIN HUMAN
     Indication: PRODUCT USED FOR UNKNOWN INDICATION
     Dosage: 80 U, TID
     Route: 065

REACTIONS (8)
  - Drug dose omission [Unknown]
  - Vomiting [Unknown]
  - Insulin resistance [Unknown]
  - Product storage error [Unknown]
  - Blood glucose decreased [Unknown]
  - Nausea [Unknown]
  - Blood glucose increased [Unknown]
  - Feeling abnormal [Unknown]
